FAERS Safety Report 14621242 (Version 4)
Quarter: 2018Q2

REPORT INFORMATION
  Report Type: Report from Study
  Country: CN (occurrence: CN)
  Receive Date: 20180310
  Receipt Date: 20180424
  Transmission Date: 20180711
  Serious: Yes (Hospitalization, Other)
  Sender: FDA-Public Use
  Company Number: CN-ROCHE-1883278

PATIENT
  Age: 53 Year
  Sex: Male
  Weight: 51 kg

DRUGS (3)
  1. AVASTIN [Suspect]
     Active Substance: BEVACIZUMAB
     Route: 041
  2. AVASTIN [Suspect]
     Active Substance: BEVACIZUMAB
     Indication: COLORECTAL CANCER
     Route: 041
     Dates: start: 20160711, end: 20161222
  3. AVASTIN [Suspect]
     Active Substance: BEVACIZUMAB
     Route: 041

REACTIONS (11)
  - Nasopharyngitis [Unknown]
  - Pain [Unknown]
  - Nephrolithiasis [Unknown]
  - Epistaxis [Recovered/Resolved]
  - Abdominal discomfort [Unknown]
  - Intervertebral disc protrusion [Unknown]
  - Asthenia [Unknown]
  - Haematuria [Recovering/Resolving]
  - Discomfort [Recovering/Resolving]
  - Fatigue [Unknown]
  - Blood urine present [Recovering/Resolving]

NARRATIVE: CASE EVENT DATE: 20161231
